FAERS Safety Report 8550009 (Version 2)
Quarter: 2012Q4

REPORT INFORMATION
  Report Type: 
  Country: DK (occurrence: DK)
  Receive Date: 20120507
  Receipt Date: 20121107
  Transmission Date: 20130627
  Serious: Yes (Other)
  Sender: FDA-Public Use
  Company Number: DK-PFIZER INC-2012108828

PATIENT
  Age: 26 Year
  Sex: Male

DRUGS (7)
  1. ETOPOSIDE [Suspect]
     Indication: DIFFUSE LARGE B-CELL LYMPHOMA STAGE IV
     Dosage: UNK, 2-week interval
     Route: 065
     Dates: start: 2008, end: 200805
  2. DOXORUBICIN HCL [Suspect]
     Indication: DIFFUSE LARGE B-CELL LYMPHOMA STAGE IV
     Dosage: UNK, 2-week interval
     Route: 065
     Dates: start: 2008, end: 200805
  3. PREDNISONE [Suspect]
     Indication: DIFFUSE LARGE B-CELL LYMPHOMA STAGE IV
     Dosage: UNK, 2-week interval
     Route: 065
     Dates: start: 2008, end: 200805
  4. VINCRISTINE [Suspect]
     Indication: DIFFUSE LARGE B-CELL LYMPHOMA STAGE IV
     Dosage: UNK, 2-week interval
     Route: 065
     Dates: start: 2008, end: 200805
  5. RITUXIMAB [Suspect]
     Indication: DIFFUSE LARGE B-CELL LYMPHOMA STAGE IV
     Dosage: UNK, 2-week interval
     Route: 065
     Dates: start: 2008, end: 200805
  6. CYCLOPHOSPHAMIDE [Suspect]
     Indication: DIFFUSE LARGE B-CELL LYMPHOMA STAGE IV
     Dosage: UNK, 2-week interval
     Route: 065
     Dates: start: 2008, end: 200805
  7. LAMIVUDINE [Concomitant]
     Indication: PROPHYLAXIS
     Dosage: 100 mg daily

REACTIONS (1)
  - Hepatitis D [Not Recovered/Not Resolved]
